FAERS Safety Report 6974522-3 (Version None)
Quarter: 2010Q3

REPORT INFORMATION
  Report Type: 
  Country: None (occurrence: None)
  Receive Date: 20100909
  Receipt Date: 20100909
  Transmission Date: 20110219
  Serious: No
  Sender: FDA-Public Use
  Company Number: None

PATIENT
  Sex: Female
  Weight: 79.3795 kg

DRUGS (2)
  1. DIAZEPAM [Suspect]
     Indication: ANXIETY
     Dosage: 10 MG TID PO (JULY)
     Route: 048
  2. DIAZEPAM [Suspect]
     Dosage: 10 MG TID PO (AUGUST)
     Route: 048

REACTIONS (2)
  - DRUG INEFFECTIVE [None]
  - PRODUCT SUBSTITUTION ISSUE [None]
